FAERS Safety Report 17119537 (Version 3)
Quarter: 2020Q1

REPORT INFORMATION
  Report Type: Report from Study
  Country: CA (occurrence: CA)
  Receive Date: 20191206
  Receipt Date: 20200331
  Transmission Date: 20200409
  Serious: Yes (Hospitalization, Other)
  Sender: FDA-Public Use
  Company Number: CA-BRISTOL-MYERS SQUIBB COMPANY-BMS-2019-113758

PATIENT
  Age: 80 Year
  Sex: Male

DRUGS (1)
  1. ABATACEPT [Suspect]
     Active Substance: ABATACEPT
     Indication: RHEUMATOID ARTHRITIS
     Dosage: 750 MILLIGRAM, Q4WK
     Route: 042
     Dates: start: 20120125

REACTIONS (5)
  - Cerebrovascular accident [Recovering/Resolving]
  - Wound [Recovering/Resolving]
  - Dyspnoea [Not Recovered/Not Resolved]
  - Lower respiratory tract infection [Unknown]
  - Fall [Unknown]

NARRATIVE: CASE EVENT DATE: 201911
